FAERS Safety Report 5289650-0 (Version None)
Quarter: 2007Q2

REPORT INFORMATION
  Report Type: 
  Country: None (occurrence: None)
  Receive Date: 20070406
  Receipt Date: 20070326
  Transmission Date: 20071010
  Serious: Yes (Other)
  Sender: FDA-Public Use
  Company Number: JP-MERCK-0702USA02384

PATIENT
  Age: 63 Year
  Sex: Female

DRUGS (8)
  1. FOSAMAX [Suspect]
     Indication: OSTEOPOROSIS
     Route: 048
     Dates: start: 20061017, end: 20070119
  2. FOSAMAX [Suspect]
     Indication: HYPERPARATHYROIDISM
     Route: 048
     Dates: start: 20061017, end: 20070119
  3. TANATRIL [Concomitant]
     Indication: HYPERTENSION
     Route: 048
     Dates: start: 20051007
  4. NU-LOTAN [Concomitant]
     Indication: HYPERTENSION
     Route: 048
     Dates: start: 20050322
  5. ATELEC [Concomitant]
     Indication: HYPERTENSION
     Route: 048
     Dates: start: 20051007
  6. MEVALOTIN [Concomitant]
     Route: 048
     Dates: start: 20050419
  7. CERCINE [Concomitant]
     Route: 048
     Dates: start: 20050419
  8. ALLOPURINOL [Concomitant]
     Route: 048
     Dates: start: 20050419

REACTIONS (1)
  - HYPERTENSION [None]
